FAERS Safety Report 6942842-4 (Version None)
Quarter: 2010Q3

REPORT INFORMATION
  Report Type: 
  Country: None (occurrence: None)
  Receive Date: 20100826
  Receipt Date: 20100817
  Transmission Date: 20110219
  Serious: Yes (Hospitalization)
  Sender: FDA-Public Use
  Company Number: CA-JNJFOC-20100104509

PATIENT
  Sex: Male
  Weight: 83 kg

DRUGS (5)
  1. REMICADE [Suspect]
     Indication: CROHN'S DISEASE
     Dosage: 100 MG VIALS
     Route: 042
  2. REMICADE [Suspect]
     Dosage: 100 MG VIALS
     Route: 042
  3. REMICADE [Suspect]
     Route: 042
  4. ANTI HYPERTENSIVE [Concomitant]
     Indication: HYPERTENSION
  5. METHOTREXATE [Concomitant]

REACTIONS (3)
  - BLADDER CANCER [None]
  - ILEUS [None]
  - THROMBOSIS [None]
